FAERS Safety Report 6859737-7 (Version None)
Quarter: 2010Q3

REPORT INFORMATION
  Report Type: 
  Country: None (occurrence: None)
  Receive Date: 20100719
  Receipt Date: 20100719
  Transmission Date: 20110219
  Serious: Yes (Other)
  Sender: FDA-Public Use
  Company Number: None

PATIENT
  Age: 77 Year
  Sex: Male
  Weight: 74.8435 kg

DRUGS (1)
  1. JANUVIA [Suspect]
     Indication: DIABETES MELLITUS
     Dosage: 100 MG ONCE A DAY
     Dates: start: 20091022, end: 20100125

REACTIONS (7)
  - COUGH [None]
  - DIARRHOEA [None]
  - FAECAL INCONTINENCE [None]
  - PNEUMONIA [None]
  - RESPIRATORY TRACT INFECTION [None]
  - SINUS DISORDER [None]
  - SPLEEN DISORDER [None]
